FAERS Safety Report 9191548 (Version 1)
Quarter: 2013Q1

REPORT INFORMATION
  Report Type: Spontaneous
  Country: US (occurrence: US)
  Receive Date: 20130326
  Receipt Date: 20130326
  Transmission Date: 20140127
  Serious: No
  Sender: FDA-Public Use
  Company Number: US-009507513-1303USA011145

PATIENT
  Sex: Female

DRUGS (2)
  1. TIMOPTIC [Suspect]
     Indication: GLAUCOMA
     Route: 047
  2. TRAVATAN [Suspect]
     Indication: GLAUCOMA
     Route: 047

REACTIONS (3)
  - Drug intolerance [Unknown]
  - Ocular hyperaemia [Unknown]
  - Eye pain [Unknown]
